FAERS Safety Report 4411183-1 (Version None)
Quarter: 2004Q3

REPORT INFORMATION
  Report Type: 
  Country: None (occurrence: None)
  Receive Date: 20040727
  Receipt Date: 20040712
  Transmission Date: 20050211
  Serious: Yes (Hospitalization, Other)
  Sender: FDA-Public Use
  Company Number: 2004-DE-03837DE

PATIENT
  Age: 60 Year
  Sex: Male

DRUGS (1)
  1. MOBEC 15 MG KAPSELN (MELOXICAM) (TA) (MELOXICAM) [Suspect]
     Dosage: 300 MG (15 MG, 1X20 TABLETS) PO; ONCE
     Route: 048

REACTIONS (4)
  - ABDOMINAL PAIN UPPER [None]
  - DRUG ABUSER [None]
  - OVERDOSE [None]
  - SUICIDE ATTEMPT [None]
